FAERS Safety Report 18502538 (Version 1)
Quarter: 2020Q4

REPORT INFORMATION
  Report Type: Spontaneous
  Country: IE (occurrence: IE)
  Receive Date: 20201113
  Receipt Date: 20201113
  Transmission Date: 20210114
  Serious: Yes (Other)
  Sender: FDA-Public Use
  Company Number: IE-VIIV HEALTHCARE LIMITED-IE2020GSK225196

PATIENT
  Age: 33 Year
  Sex: Female

DRUGS (3)
  1. DIDANOSINE. [Suspect]
     Active Substance: DIDANOSINE
     Indication: HIV INFECTION
     Dosage: UNK
  2. LAMIVUDINE. [Suspect]
     Active Substance: LAMIVUDINE
     Indication: HIV INFECTION
     Dosage: UNK
  3. NELFINAVIR [Suspect]
     Active Substance: NELFINAVIR
     Indication: HIV INFECTION
     Dosage: UNK

REACTIONS (8)
  - Hyperintensity in brain deep nuclei [Recovered/Resolved]
  - CSF protein increased [Recovered/Resolved]
  - Epstein-Barr virus test positive [Recovered/Resolved]
  - Lymphocytic infiltration [Recovered/Resolved]
  - Encephalitis [Recovered/Resolved]
  - Pathogen resistance [Unknown]
  - Drug resistance [Unknown]
  - CSF white blood cell count increased [Recovered/Resolved]
